FAERS Safety Report 8261854-4 (Version None)
Quarter: 2012Q2

REPORT INFORMATION
  Report Type: 
  Country: None (occurrence: None)
  Receive Date: 20120405
  Receipt Date: 20120329
  Transmission Date: 20120825
  Serious: Yes (Death, Hospitalization, Other)
  Sender: FDA-Public Use
  Company Number: US-CELGENEUS-163-21880-12030271

PATIENT
  Age: 65 Year
  Sex: Male
  Weight: 125.5 kg

DRUGS (7)
  1. IDARUBICIN HCL [Suspect]
     Dosage: 12 MILLIGRAM/SQ. METER
     Route: 041
     Dates: start: 20111205, end: 20111223
  2. NEUPOGEN [Concomitant]
     Indication: FULL BLOOD COUNT DECREASED
     Route: 065
     Dates: start: 20120312
  3. CYTARABINE [Suspect]
     Dosage: 100 MILLIGRAM/SQ. METER
     Route: 041
     Dates: start: 20120217, end: 20120225
  4. IDARUBICIN HCL [Suspect]
     Dosage: 12 MILLIGRAM/SQ. METER
     Route: 041
     Dates: start: 20120217, end: 20120222
  5. REVLIMID [Suspect]
     Dosage: 30 MILLIGRAM
     Route: 048
     Dates: start: 20120217, end: 20120224
  6. REVLIMID [Suspect]
     Dosage: 30 MILLIGRAM
     Route: 048
     Dates: start: 20111205, end: 20111223
  7. CYTARABINE [Suspect]
     Dosage: 100 MILLIGRAM/SQ. METER
     Route: 041
     Dates: start: 20111205, end: 20111223

REACTIONS (8)
  - PNEUMONITIS [None]
  - RASH MACULO-PAPULAR [None]
  - CEREBROVASCULAR ACCIDENT [None]
  - DEVICE RELATED INFECTION [None]
  - PLATELET COUNT DECREASED [None]
  - NEUTROPHIL COUNT DECREASED [None]
  - WHITE BLOOD CELL COUNT DECREASED [None]
  - PULMONARY OEDEMA [None]
